FAERS Safety Report 8550138-2 (Version None)
Quarter: 2012Q3

REPORT INFORMATION
  Report Type: 
  Country: None (occurrence: None)
  Receive Date: 20120730
  Receipt Date: 20110630
  Transmission Date: 20120928
  Serious: No
  Sender: FDA-Public Use
  Company Number: US-ALLERGAN-1011483US

PATIENT
  Age: 76 Year
  Sex: Female

DRUGS (6)
  1. LATISSE [Suspect]
     Dosage: 1 GTT, QHS
     Route: 061
     Dates: start: 20110601
  2. RITALIN [Concomitant]
     Indication: ATTENTION DEFICIT/HYPERACTIVITY DISORDER
     Dosage: UNK
  3. ASPIRIN [Concomitant]
  4. VITAMIN TAB [Concomitant]
  5. CHOLESTEROL DRUG [Concomitant]
     Indication: HYPERCHOLESTEROLAEMIA
     Dosage: UNK
  6. LATISSE [Suspect]
     Indication: GROWTH OF EYELASHES
     Dosage: 1 GTT, QHS

REACTIONS (6)
  - EYE PRURITUS [None]
  - WRONG TECHNIQUE IN DRUG USAGE PROCESS [None]
  - PIGMENTATION DISORDER [None]
  - ORAL HERPES [None]
  - PARAESTHESIA [None]
  - EYE DISORDER [None]
